FAERS Safety Report 25174496 (Version 1)
Quarter: 2025Q2

REPORT INFORMATION
  Report Type: Spontaneous
  Country: US (occurrence: US)
  Receive Date: 20250408
  Receipt Date: 20250408
  Transmission Date: 20250717
  Serious: No
  Sender: FERRING
  Company Number: US-FERRINGPH-2024FE02775

PATIENT
  Sex: Male

DRUGS (1)
  1. FIRMAGON [Suspect]
     Active Substance: DEGARELIX ACETATE
     Indication: Prostate cancer
     Route: 065
     Dates: start: 20240522

REACTIONS (3)
  - Injection site erythema [Unknown]
  - Injection site inflammation [Unknown]
  - Injection site mass [Unknown]
